FAERS Safety Report 20329862 (Version 1)
Quarter: 2022Q1

REPORT INFORMATION
  Report Type: Spontaneous
  Country: US (occurrence: None)
  Receive Date: 20220113
  Receipt Date: 20220113
  Transmission Date: 20220423
  Serious: No
  Sender: FDA-Public Use
  Company Number: 2022A012909

PATIENT
  Sex: Male

DRUGS (1)
  1. BRILINTA [Suspect]
     Active Substance: TICAGRELOR
     Indication: Stent placement
     Route: 048

REACTIONS (5)
  - Dyspnoea [Unknown]
  - Skin haemorrhage [Unknown]
  - Anaemia [Unknown]
  - Lyme disease [Unknown]
  - Bleeding time prolonged [Unknown]
